FAERS Safety Report 20094904 (Version 1)
Quarter: 2021Q4

REPORT INFORMATION
  Report Type: Spontaneous
  Country: US (occurrence: US)
  Receive Date: 20211122
  Receipt Date: 20211122
  Transmission Date: 20220303
  Serious: Yes (Other)
  Sender: FDA-Public Use
  Company Number: ENDG21-07195

PATIENT
  Sex: Female

DRUGS (1)
  1. DILTIAZEM HYDROCHLORIDE [Suspect]
     Active Substance: DILTIAZEM HYDROCHLORIDE
     Indication: Product used for unknown indication
     Dosage: 120 MG, DAILY
     Route: 048

REACTIONS (4)
  - Transient ischaemic attack [Unknown]
  - Weight decreased [Unknown]
  - Ill-defined disorder [Unknown]
  - Product label issue [Unknown]

NARRATIVE: CASE EVENT DATE: 20210101
